FAERS Safety Report 5441635-7 (Version None)
Quarter: 2007Q3

REPORT INFORMATION
  Report Type: 
  Country: None (occurrence: None)
  Receive Date: 20070904
  Receipt Date: 20070829
  Transmission Date: 20080115
  Serious: Yes (Death)
  Sender: FDA-Public Use
  Company Number: CA-NOVOPROD-266975

PATIENT

DRUGS (1)
  1. NOVOMIX PENFILL 3 ML [Suspect]
     Indication: DIABETES MELLITUS

REACTIONS (1)
  - DEATH [None]
